FAERS Safety Report 9288619 (Version 1)
Quarter: 2013Q2

REPORT INFORMATION
  Report Type: Spontaneous
  Country: US (occurrence: US)
  Receive Date: 20130514
  Receipt Date: 20130514
  Transmission Date: 20140414
  Serious: No
  Sender: FDA-Public Use
  Company Number: US-OPTIMER PHARMACEUTICALS, INC.-20110047

PATIENT
  Age: 80 Year
  Sex: Female

DRUGS (5)
  1. DIFICID [Suspect]
     Indication: CLOSTRIDIUM DIFFICILE COLITIS
     Dosage: 200 MG, BID
     Route: 048
     Dates: start: 20111004, end: 20111014
  2. DIFICID [Suspect]
     Dosage: 200 MG, BID
     Route: 048
     Dates: start: 201110
  3. TRENTAL [Concomitant]
     Dosage: 400 MG, BID
  4. LUMIGAN RC [Concomitant]
     Dosage: UNK, QD
     Route: 047
  5. IMODIUM [Concomitant]
     Dosage: UNK, PRN

REACTIONS (4)
  - Clostridium difficile colitis [Not Recovered/Not Resolved]
  - Disease recurrence [Not Recovered/Not Resolved]
  - Diarrhoea [Not Recovered/Not Resolved]
  - Drug dose omission [Unknown]
